FAERS Safety Report 5824709-8 (Version None)
Quarter: 2008Q3

REPORT INFORMATION
  Report Type: 
  Country: None (occurrence: None)
  Receive Date: 20080722
  Receipt Date: 20080715
  Transmission Date: 20090109
  Serious: No
  Sender: FDA-Public Use
  Company Number: 163-21880-06121015

PATIENT
  Age: 78 Year
  Sex: Female

DRUGS (8)
  1. REVLIMID [Suspect]
     Indication: MULTIPLE MYELOMA
     Dosage: 25 MG, ORAL, 10 MG, DAILYX14 DAYS, ORAL, 5 MG, DAILY X14 DAYS, ORAL
     Route: 048
     Dates: start: 20061023, end: 20070401
  2. REVLIMID [Suspect]
     Indication: MULTIPLE MYELOMA
     Dosage: 25 MG, ORAL, 10 MG, DAILYX14 DAYS, ORAL, 5 MG, DAILY X14 DAYS, ORAL
     Route: 048
     Dates: start: 20070503, end: 20071001
  3. REVLIMID [Suspect]
     Indication: MULTIPLE MYELOMA
     Dosage: 25 MG, ORAL, 10 MG, DAILYX14 DAYS, ORAL, 5 MG, DAILY X14 DAYS, ORAL
     Route: 048
     Dates: start: 20071025
  4. REVLIMID [Suspect]
  5. REVLIMID [Concomitant]
  6. COUMADIN [Concomitant]
  7. SYSTANE OTC OCULAR LUBRICANT (RHINARIS) (OPHTHALMIC) [Concomitant]
  8. DEXAMETHASONE TAB [Concomitant]

REACTIONS (10)
  - ABDOMINAL PAIN UPPER [None]
  - ALOPECIA [None]
  - CATARACT [None]
  - DIARRHOEA [None]
  - DRY EYE [None]
  - HYPOAESTHESIA [None]
  - NAUSEA [None]
  - TREMOR [None]
  - VISION BLURRED [None]
  - VOMITING [None]
